FAERS Safety Report 10096697 (Version 1)
Quarter: 2014Q2

REPORT INFORMATION
  Report Type: Spontaneous
  Country: US (occurrence: None)
  Receive Date: 20140421
  Receipt Date: 20140421
  Transmission Date: 20141212
  Serious: No
  Sender: FDA-Public Use
  Company Number: None

PATIENT
  Age: 58 Year
  Sex: Female

DRUGS (1)
  1. SPIRIVA [Suspect]
     Dosage: 18 MCG, QD, INHALATION
     Route: 055
     Dates: start: 20140418

REACTIONS (1)
  - Incorrect route of drug administration [None]
